FAERS Safety Report 6406283-0 (Version None)
Quarter: 2009Q4

REPORT INFORMATION
  Report Type: 
  Country: None (occurrence: None)
  Receive Date: 20091019
  Receipt Date: 20091007
  Transmission Date: 20100525
  Serious: Yes (Hospitalization, Other)
  Sender: FDA-Public Use
  Company Number: PHHY2009JP42261

PATIENT
  Age: 54 Year
  Sex: Female

DRUGS (4)
  1. CYCLOSPORINE [Suspect]
     Indication: RENAL TRANSPLANT
  2. SIMULECT [Suspect]
     Indication: RENAL TRANSPLANT
  3. PREDNISOLONE [Suspect]
     Indication: RENAL TRANSPLANT
  4. MYCOPHENOLATE MOFETIL [Suspect]
     Indication: RENAL TRANSPLANT

REACTIONS (14)
  - ABDOMINAL OPERATION [None]
  - ABDOMINAL PAIN [None]
  - ASCITES [None]
  - COLECTOMY [None]
  - COLOSTOMY [None]
  - DIVERTICULAR PERFORATION [None]
  - DIVERTICULUM INTESTINAL [None]
  - INTESTINAL DILATATION [None]
  - INTESTINAL MUCOSAL HYPERTROPHY [None]
  - LARGE INTESTINE PERFORATION [None]
  - PERITONEAL LAVAGE [None]
  - PERITONITIS [None]
  - POSTOPERATIVE WOUND INFECTION [None]
  - PYREXIA [None]
